FAERS Safety Report 18581990 (Version 1)
Quarter: 2020Q4

REPORT INFORMATION
  Report Type: Spontaneous
  Country: CN (occurrence: CN)
  Receive Date: 20201204
  Receipt Date: 20201204
  Transmission Date: 20210114
  Serious: Yes (Other)
  Sender: FDA-Public Use
  Company Number: CN-ANIPHARMA-2020-CN-000359

PATIENT
  Age: 76 Year
  Sex: Female

DRUGS (4)
  1. ARIMIDEX [Suspect]
     Active Substance: ANASTROZOLE
     Indication: BREAST CANCER
     Route: 048
  2. ANTIHYPERTENSIVES [Concomitant]
     Active Substance: UNSPECIFIED INGREDIENT
     Dosage: UNKNOWN DOSE AND FREQUENCY
     Route: 065
  3. XUEGONGYE [Suspect]
     Active Substance: UNSPECIFIED INGREDIENT
     Dosage: UNKNOWN DOSE AND FREQUENCY
  4. ASPIRIN. [Concomitant]
     Active Substance: ASPIRIN
     Dosage: UNKNOWN DOSE ONCE A DAY
     Route: 065

REACTIONS (2)
  - Azotaemia [Unknown]
  - Renal failure [Recovering/Resolving]
